FAERS Safety Report 21207537 (Version 2)
Quarter: 2022Q3

REPORT INFORMATION
  Report Type: Report from Study
  Country: FR (occurrence: FR)
  Receive Date: 20220812
  Receipt Date: 20220903
  Transmission Date: 20221027
  Serious: Yes (Life-Threatening)
  Sender: FDA-Public Use
  Company Number: FR-SA-SAC20220628000058

PATIENT
  Age: 53 Year
  Sex: Female
  Weight: 90 kg

DRUGS (22)
  1. ISATUXIMAB [Suspect]
     Active Substance: ISATUXIMAB
     Indication: Plasma cell myeloma refractory
     Dosage: 900 MG
     Dates: start: 20220601, end: 20220601
  2. ISATUXIMAB [Suspect]
     Active Substance: ISATUXIMAB
     Dosage: 950 MG
     Dates: start: 20220608, end: 20220608
  3. ISATUXIMAB [Suspect]
     Active Substance: ISATUXIMAB
     Dosage: THERAPY RESTARTED
     Dates: start: 20220629
  4. ISATUXIMAB [Suspect]
     Active Substance: ISATUXIMAB
     Dosage: 900 MG
     Dates: start: 20220713, end: 20220713
  5. CARFILZOMIB [Suspect]
     Active Substance: CARFILZOMIB
     Indication: Plasma cell myeloma refractory
     Dosage: 40 MG
     Dates: start: 20220601, end: 20220601
  6. CARFILZOMIB [Suspect]
     Active Substance: CARFILZOMIB
     Dosage: 40 MG (THERAPY INTRUPTTED)
     Dates: start: 20220609, end: 20220609
  7. CARFILZOMIB [Suspect]
     Active Substance: CARFILZOMIB
     Dosage: 40 MG (THERAPY RESTARTED)
     Dates: start: 20220629
  8. CARFILZOMIB [Suspect]
     Active Substance: CARFILZOMIB
     Dosage: 40 MG
     Dates: start: 20220713, end: 20220713
  9. POMALIDOMIDE [Suspect]
     Active Substance: POMALIDOMIDE
     Indication: Plasma cell myeloma refractory
     Dosage: 3 MG
     Dates: start: 20220601, end: 20220601
  10. POMALIDOMIDE [Suspect]
     Active Substance: POMALIDOMIDE
     Dosage: 3 MG (THERPAY INTERUPTTED)
     Dates: start: 20220614, end: 20220615
  11. POMALIDOMIDE [Suspect]
     Active Substance: POMALIDOMIDE
     Dosage: 3 MG (THERAPY RESATRTED)
     Dates: start: 20220629
  12. POMALIDOMIDE [Suspect]
     Active Substance: POMALIDOMIDE
     Dosage: 3 MG
     Dates: start: 20220719, end: 20220719
  13. DEXAMETHASONE [Concomitant]
     Active Substance: DEXAMETHASONE
     Indication: Plasma cell myeloma refractory
     Dosage: 40 MG
     Dates: start: 20220601, end: 20220601
  14. DEXAMETHASONE [Concomitant]
     Active Substance: DEXAMETHASONE
     Dosage: 40 MG(THERPY INTRUPTTED)
     Dates: start: 20220608, end: 20220608
  15. DEXAMETHASONE [Concomitant]
     Active Substance: DEXAMETHASONE
     Dosage: 40 MG  (THERPAY RESTARTED)
     Dates: start: 20220629
  16. DEXAMETHASONE [Concomitant]
     Active Substance: DEXAMETHASONE
     Dosage: 40 MG
     Dates: start: 20220719, end: 20220719
  17. BACTRIM [Concomitant]
     Active Substance: SULFAMETHOXAZOLE\TRIMETHOPRIM
     Indication: Antibiotic prophylaxis
     Dosage: UNK
     Dates: start: 20220601, end: 20220615
  18. FOLINAL [Concomitant]
     Indication: Antibiotic prophylaxis
     Dosage: UNK
     Dates: start: 20220601
  19. VALACYCLOVIR HYDROCHLORIDE [Concomitant]
     Active Substance: VALACYCLOVIR HYDROCHLORIDE
     Indication: Antibiotic prophylaxis
     Dosage: UNK
     Dates: start: 20220601
  20. ASPIRIN [Concomitant]
     Active Substance: ASPIRIN
     Indication: Thrombocytopenia
     Dosage: 100 MG
     Dates: start: 20220601
  21. PREDNISONE [Concomitant]
     Active Substance: PREDNISONE
     Indication: Bronchitis
     Dosage: 20 MG
     Dates: start: 20220613
  22. VALACYCLOVIR HYDROCHLORIDE [Concomitant]
     Active Substance: VALACYCLOVIR HYDROCHLORIDE
     Dosage: 500 MG, BID
     Dates: start: 202206

REACTIONS (2)
  - Neutropenia [Not Recovered/Not Resolved]
  - Neutropenia [Recovered/Resolved]

NARRATIVE: CASE EVENT DATE: 20220620
